FAERS Safety Report 9612068 (Version 3)
Quarter: 2014Q1

REPORT INFORMATION
  Report Type: Spontaneous
  Country: US (occurrence: US)
  Receive Date: 20131010
  Receipt Date: 20140113
  Transmission Date: 20141002
  Serious: No
  Sender: FDA-Public Use
  Company Number: US-ASTELLAS-2013US009408

PATIENT
  Sex: Male

DRUGS (3)
  1. VESICARE [Suspect]
     Indication: MICTURITION URGENCY
     Dosage: 10 MG, UID/QD
     Route: 048
  2. MYRBETRIQ [Suspect]
     Indication: MICTURITION URGENCY
     Dosage: 25 MG, UID/QD
     Route: 048
  3. MYRBETRIQ [Suspect]
     Dosage: 50 MG, UID/QD
     Route: 048

REACTIONS (1)
  - Drug ineffective [Unknown]
